FAERS Safety Report 17707687 (Version 1)
Quarter: 2020Q2

REPORT INFORMATION
  Report Type: Spontaneous
  Country: AU (occurrence: AU)
  Receive Date: 20200424
  Receipt Date: 20200424
  Transmission Date: 20200714
  Serious: Yes (Life-Threatening, Hospitalization, Other)
  Sender: FDA-Public Use
  Company Number: AU-ASTRAZENECA-2020SE55290

PATIENT
  Age: 66 Year
  Sex: Male

DRUGS (9)
  1. ESCITALOPRAM [Suspect]
     Active Substance: ESCITALOPRAM OXALATE
     Dosage: UNKNOWN
     Route: 065
  2. VALSARTAN/AMLODIPINO [Suspect]
     Active Substance: AMLODIPINE\VALSARTAN
     Dosage: UNKNOWN
     Route: 065
  3. VENLAFAXINE HCL [Suspect]
     Active Substance: VENLAFAXINE HYDROCHLORIDE
     Dosage: UNKNOWN
     Route: 065
  4. MOCLOBEMIDE [Suspect]
     Active Substance: MOCLOBEMIDE
     Dosage: UNKNOWN
     Route: 065
  5. PARACETAMOL [Suspect]
     Active Substance: ACETAMINOPHEN
     Dosage: UNKNOWN
     Route: 065
  6. ESOMEPRAZOLE MAGNESIUM. [Suspect]
     Active Substance: ESOMEPRAZOLE MAGNESIUM
     Dosage: UNKNOWN
     Route: 048
  7. FLUOXETINE [Suspect]
     Active Substance: FLUOXETINE HYDROCHLORIDE
     Dosage: UNKNOWN
     Route: 065
  8. XELJANZ [Suspect]
     Active Substance: TOFACITINIB CITRATE
     Indication: RHEUMATOID ARTHRITIS
     Route: 048
     Dates: start: 20151203
  9. TRAMADOL HCL [Suspect]
     Active Substance: TRAMADOL HYDROCHLORIDE
     Dosage: UNKNOWN
     Route: 065

REACTIONS (9)
  - Atelectasis [Unknown]
  - Pleural effusion [Unknown]
  - Intentional overdose [Recovered/Resolved]
  - Cognitive disorder [Unknown]
  - Metabolic acidosis [Unknown]
  - Physical deconditioning [Unknown]
  - Suicide attempt [Recovered/Resolved]
  - Serotonin syndrome [Unknown]
  - Acute kidney injury [Unknown]

NARRATIVE: CASE EVENT DATE: 201911
